FAERS Safety Report 4580593-4 (Version None)
Quarter: 2005Q1

REPORT INFORMATION
  Report Type: 
  Country: None (occurrence: None)
  Receive Date: 20050214
  Receipt Date: 20040421
  Transmission Date: 20050727
  Serious: No
  Sender: FDA-Public Use
  Company Number: US-GLAXOSMITHKLINE-A0507893A

PATIENT
  Age: 47 Year
  Sex: Male

DRUGS (13)
  1. LAMICTAL [Suspect]
     Indication: NEUROPATHY PERIPHERAL
     Dosage: 25MG TWICE PER DAY
     Route: 048
  2. KALETRA [Concomitant]
  3. ZERIT [Concomitant]
  4. VIDEX [Concomitant]
  5. OXYCONTIN [Concomitant]
  6. VIREAD [Concomitant]
  7. IMODIUM [Concomitant]
  8. TESTOSTERONE [Concomitant]
  9. LEXAPRO [Concomitant]
  10. COMBIVENT [Concomitant]
  11. ADVAIR DISKUS 100/50 [Concomitant]
  12. MIRTAZAPINE [Concomitant]
  13. SONATA [Concomitant]

REACTIONS (4)
  - DYSGEUSIA [None]
  - LIP DISCOLOURATION [None]
  - PRURITUS [None]
  - RASH [None]
